FAERS Safety Report 9280809 (Version 1)
Quarter: 2013Q2

REPORT INFORMATION
  Report Type: Spontaneous
  Country: US (occurrence: US)
  Receive Date: 20130509
  Receipt Date: 20130509
  Transmission Date: 20140414
  Serious: No
  Sender: FDA-Public Use
  Company Number: US-PFIZER INC-2013142998

PATIENT
  Age: 33 Year
  Sex: Female
  Weight: 63.49 kg

DRUGS (1)
  1. CHILDRENS ADVIL [Suspect]
     Indication: HEADACHE
     Dosage: 3 TEASPOONS, TWO TIMES A DAY
     Route: 048
     Dates: start: 20130421, end: 20130421

REACTIONS (2)
  - Drug administered to patient of inappropriate age [Unknown]
  - Nausea [Unknown]
